FAERS Safety Report 19501133 (Version 1)
Quarter: 2021Q3

REPORT INFORMATION
  Report Type: Spontaneous
  Country: NL (occurrence: NL)
  Receive Date: 20210707
  Receipt Date: 20210707
  Transmission Date: 20211014
  Serious: Yes (Disabling, Other)
  Sender: FDA-Public Use
  Company Number: NL-AUROBINDO-AUR-APL-2021-028489

PATIENT
  Sex: Male
  Weight: 62 kg

DRUGS (3)
  1. PAROXETIN FILM?COATED TABLET 20MG [Suspect]
     Active Substance: PAROXETINE
     Dosage: 40 MILLIGRAM, ONCE A DAY(EERST 20MG TABLET, DAARNA 40MG TABLET. VERVOLGENS AFBOUWEN MET SUSPENSIE)
     Route: 065
     Dates: start: 2019
  2. PAROXETIN FILM?COATED TABLET 20MG [Suspect]
     Active Substance: PAROXETINE
     Indication: ANXIETY
     Dosage: 1 DOSAGE FORM (1 EERST 20MG TABLET, DAARNA 40MG TABLET. VERVOLGENS AFBOUWEN MET SUSPENSIE)
     Route: 065
  3. PAROXETIN FILM?COATED TABLET 20MG [Suspect]
     Active Substance: PAROXETINE
     Dosage: 20 MILLIGRAM, ONCE A DAY(1 EERST 20MG TABLET, DAARNA 40MG TABLET. VERVOLGENS AFBOUWEN MET SUSPENSIE)
     Route: 065
     Dates: start: 201901

REACTIONS (6)
  - Depressed level of consciousness [Recovering/Resolving]
  - Listless [Recovering/Resolving]
  - Aggression [Recovering/Resolving]
  - Insomnia [Recovered/Resolved]
  - Paranoia [Recovering/Resolving]
  - Weight increased [Recovered/Resolved]
